FAERS Safety Report 8220824-2 (Version None)
Quarter: 2012Q1

REPORT INFORMATION
  Report Type: 
  Country: None (occurrence: None)
  Receive Date: 20120320
  Receipt Date: 20120308
  Transmission Date: 20120608
  Serious: Yes (Death)
  Sender: FDA-Public Use
  Company Number: US-MYLANLABS-2012S1005129

PATIENT
  Age: 2 Year
  Sex: Male

DRUGS (1)
  1. FENTANYL-100 [Suspect]
     Route: 048

REACTIONS (2)
  - ACCIDENTAL EXPOSURE [None]
  - ACCIDENTAL OVERDOSE [None]
